FAERS Safety Report 7135080-6 (Version None)
Quarter: 2010Q4

REPORT INFORMATION
  Report Type: 
  Country: None (occurrence: None)
  Receive Date: 20101203
  Receipt Date: 20101124
  Transmission Date: 20110411
  Serious: Yes (Hospitalization, Disabling, Other)
  Sender: FDA-Public Use
  Company Number: US-TEVA-257890USA

PATIENT
  Sex: Male
  Weight: 83.99 kg

DRUGS (1)
  1. QUININE SULFATE [Suspect]
     Indication: MUSCLE SPASMS

REACTIONS (8)
  - ARTERIOSCLEROSIS [None]
  - BLOOD DISORDER [None]
  - CARDIAC FAILURE CONGESTIVE [None]
  - GASTROINTESTINAL DISORDER [None]
  - HEPATIC NEOPLASM [None]
  - HYPOGLYCAEMIA [None]
  - LIVER DISORDER [None]
  - LIVER INJURY [None]
